FAERS Safety Report 5718179-8 (Version None)
Quarter: 2008Q2

REPORT INFORMATION
  Report Type: 
  Country: None (occurrence: None)
  Receive Date: 20080425
  Receipt Date: 20080415
  Transmission Date: 20081010
  Serious: Yes (Hospitalization)
  Sender: FDA-Public Use
  Company Number: GB-ROCHE-559973

PATIENT
  Sex: Female
  Weight: 76.8 kg

DRUGS (1)
  1. ORLISTAT [Suspect]
     Indication: OBESITY
     Route: 048
     Dates: start: 20071016, end: 20080201

REACTIONS (2)
  - CONTUSION [None]
  - ROAD TRAFFIC ACCIDENT [None]
